FAERS Safety Report 23684639 (Version 1)
Quarter: 2024Q1

REPORT INFORMATION
  Report Type: Spontaneous
  Country: US (occurrence: US)
  Receive Date: 20240328
  Receipt Date: 20240328
  Transmission Date: 20240409
  Serious: No
  Sender: FDA-Public Use
  Company Number: US-Evolus, Inc.-2023EV000157

PATIENT
  Age: 32 Year
  Sex: Female

DRUGS (1)
  1. JEUVEAU [Suspect]
     Active Substance: PRABOTULINUMTOXINA-XVFS
     Indication: Skin wrinkling
     Dosage: 8 UNITS BILATERALLY; 4 INJECTION SITES, 2 UNITS EACH BILATERALLY
     Dates: start: 20230411, end: 20230411

REACTIONS (3)
  - Pruritus [Recovering/Resolving]
  - Injection site swelling [Recovering/Resolving]
  - Off label use [Unknown]

NARRATIVE: CASE EVENT DATE: 20230401
